FAERS Safety Report 10967606 (Version 1)
Quarter: 2015Q1

REPORT INFORMATION
  Report Type: Other
  Country: GB (occurrence: GB)
  Receive Date: 20150330
  Receipt Date: 20150330
  Transmission Date: 20150721
  Serious: Yes (Other)
  Sender: FDA-Public Use
  Company Number: GB-MYLANLABS-2015M1008588

PATIENT

DRUGS (11)
  1. FOLIC ACID. [Concomitant]
     Active Substance: FOLIC ACID
     Dosage: UNK
  2. METHOTREXATE [Suspect]
     Active Substance: METHOTREXATE
     Indication: POLYMYALGIA RHEUMATICA
     Dosage: 7.5 MG, QW (STARTED 7.5MG WEEKLY, INCREASING TO 15MG WEEKLY)
     Dates: start: 20141016
  3. ADCAL-D3 [Concomitant]
     Active Substance: CALCIUM CARBONATE\CHOLECALCIFEROL
     Dosage: UNK
  4. CLIMAGEST [Concomitant]
     Active Substance: ESTRADIOL VALERATE\NORETHINDRONE ACETATE
     Dosage: UNK
  5. PREDNISOLONE. [Concomitant]
     Active Substance: PREDNISOLONE
     Indication: POLYMYALGIA RHEUMATICA
     Dosage: 4.5 MG, QD (4.5MG DAILY WHICH DECREASED SLOWLY TO NIL BEWEEN OCTOBER AND DECEMBER)
     Dates: start: 200408, end: 201412
  6. DOMPERIDONE [Concomitant]
     Active Substance: DOMPERIDONE
     Dosage: UNK
  7. NAPROXEN. [Concomitant]
     Active Substance: NAPROXEN
     Dosage: UNK
  8. METHOTREXATE [Suspect]
     Active Substance: METHOTREXATE
     Dosage: 15 MG, QW (STARTED 7.5MG WEEKLY, INCREASING TO 15MG WEEKLY)
     Dates: end: 20150101
  9. RANITIDINE [Concomitant]
     Active Substance: RANITIDINE\RANITIDINE HYDROCHLORIDE
     Dosage: UNK
  10. SOLIFENACIN [Concomitant]
     Active Substance: SOLIFENACIN
     Dosage: UNK
  11. AMITRIPTYLINE [Concomitant]
     Active Substance: AMITRIPTYLINE
     Dosage: UNK

REACTIONS (5)
  - Skin discolouration [Recovering/Resolving]
  - Asthenia [Recovering/Resolving]
  - Skin necrosis [Recovering/Resolving]
  - Peripheral coldness [Recovering/Resolving]
  - Chillblains [Recovering/Resolving]

NARRATIVE: CASE EVENT DATE: 201412
